FAERS Safety Report 7564219-3 (Version None)
Quarter: 2011Q2

REPORT INFORMATION
  Report Type: 
  Country: None (occurrence: None)
  Receive Date: 20110622
  Receipt Date: 20110608
  Transmission Date: 20111010
  Serious: Yes (Other)
  Sender: FDA-Public Use
  Company Number: PHHY2011US50312

PATIENT
  Sex: Female

DRUGS (16)
  1. WARFARIN SODIUM [Concomitant]
     Dosage: 2.5 MG PER DAY SUNDAY TO FRIDAY 50 MG ON SATURDAY
  2. VITAMIN D [Concomitant]
  3. MAGNESIUM [Concomitant]
  4. ZINC [Concomitant]
  5. MINERALS NOS [Concomitant]
  6. CINNAMON [Concomitant]
     Route: 048
  7. ASPIRIN [Concomitant]
     Dosage: 1 DF, PER DAY
  8. TRILIPIX [Concomitant]
     Dosage: 1 DF, PER DAY
  9. DIOVAN [Suspect]
     Dosage: VALSARTAN 160MG AND HYDROCHLOROTIAZIDE 25MG PER DAY
     Route: 048
  10. METOPROLOL TARTRATE [Concomitant]
     Dosage: 2 DF,PER DAY
  11. POTASSIUM CHLORIDE [Concomitant]
     Dosage: 10 MEQ, 4 PER DAY
  12. FISH OIL [Concomitant]
     Dosage: 1000 MG, UNK
  13. MULTI-VITAMIN [Concomitant]
  14. ALLOPURINOL [Concomitant]
     Dosage: 1 DF,PER DAY
  15. CALCIUM CARBONATE [Concomitant]
     Dosage: 600 MG, UNK
  16. FUROSEMIDE [Concomitant]
     Dosage: 40 MG, UNK

REACTIONS (6)
  - ATRIAL FIBRILLATION [None]
  - DRUG DISPENSING ERROR [None]
  - CARCINOID TUMOUR [None]
  - LIVER DISORDER [None]
  - WRONG TECHNIQUE IN DRUG USAGE PROCESS [None]
  - MEMORY IMPAIRMENT [None]
